FAERS Safety Report 9462228 (Version 2)
Quarter: 2015Q2

REPORT INFORMATION
  Report Type: Spontaneous
  Country: US (occurrence: US)
  Receive Date: 20130816
  Receipt Date: 20150403
  Transmission Date: 20150821
  Serious: Yes (Congenital Anomaly, Other)
  Sender: FDA-Public Use
  Company Number: US-ELI_LILLY_AND_COMPANY-US201308004447

PATIENT

DRUGS (2)
  1. ALBUTEROL                          /00139501/ [Concomitant]
     Active Substance: ALBUTEROL
     Dosage: UNK, PRN
     Route: 064
  2. PROZAC [Suspect]
     Active Substance: FLUOXETINE HYDROCHLORIDE
     Indication: PRODUCT USED FOR UNKNOWN INDICATION
     Dosage: 20 MG, QD
     Route: 064

REACTIONS (8)
  - Cleft uvula [Recovering/Resolving]
  - Foetal exposure during delivery [Recovered/Resolved]
  - Cleft palate [Recovering/Resolving]
  - Pseudostrabismus [Unknown]
  - Kidney enlargement [Recovered/Resolved]
  - Velopharyngeal incompetence [Unknown]
  - Jaundice [Unknown]
  - Craniosynostosis [Unknown]
